FAERS Safety Report 7772552-5 (Version None)
Quarter: 2011Q3

REPORT INFORMATION
  Report Type: 
  Country: None (occurrence: None)
  Receive Date: 20110922
  Receipt Date: 20110307
  Transmission Date: 20111222
  Serious: No
  Sender: FDA-Public Use
  Company Number: US-ASTRAZENECA-2011SE13050

PATIENT
  Age: 51 Year
  Sex: Male
  Weight: 113.4 kg

DRUGS (13)
  1. SEROQUEL [Suspect]
     Indication: BIPOLAR DISORDER
     Route: 048
     Dates: start: 20070101
  2. PROTONIX [Concomitant]
  3. SEROQUEL [Suspect]
     Route: 048
  4. RISPERIDONE [Suspect]
     Route: 065
  5. WARFARIN SODIUM [Concomitant]
  6. TRILIPIX [Concomitant]
  7. XANAX [Concomitant]
  8. TRIOPLEX INHALER [Concomitant]
  9. LIPITOR [Concomitant]
  10. LITHIUM [Concomitant]
  11. LYMICTAL [Concomitant]
  12. HYDROCODONE [Concomitant]
  13. SYNTHROID [Concomitant]

REACTIONS (2)
  - MIGRAINE [None]
  - THERAPY REGIMEN CHANGED [None]
